FAERS Safety Report 22309664 (Version 2)
Quarter: 2023Q4

REPORT INFORMATION
  Report Type: Spontaneous
  Country: US (occurrence: US)
  Receive Date: 20230511
  Receipt Date: 20231227
  Transmission Date: 20240109
  Serious: No
  Sender: FDA-Public Use
  Company Number: US-PFIZER INC-202300176540

PATIENT
  Age: 73 Year
  Sex: Female
  Weight: 56.236 kg

DRUGS (1)
  1. CLINDAMYCIN PHOSPHATE [Suspect]
     Active Substance: CLINDAMYCIN PHOSPHATE
     Indication: Vaginal infection
     Dosage: 1 TUBE
     Route: 067

REACTIONS (4)
  - Vaginal infection [Unknown]
  - Disease recurrence [Unknown]
  - Poor quality device used [Unknown]
  - Product packaging quantity issue [Unknown]
